FAERS Safety Report 6491687-0 (Version None)
Quarter: 2009Q4

REPORT INFORMATION
  Report Type: 
  Country: None (occurrence: None)
  Receive Date: 20091211
  Receipt Date: 20091202
  Transmission Date: 20100525
  Serious: Yes (Other)
  Sender: FDA-Public Use
  Company Number: US-AMGEN-QUU375067

PATIENT
  Sex: Female
  Weight: 81.6 kg

DRUGS (6)
  1. ENBREL [Suspect]
     Indication: RHEUMATOID ARTHRITIS
     Route: 058
     Dates: start: 20020104, end: 20090614
  2. METHOTREXATE [Concomitant]
     Dates: start: 20010226
  3. VASOTEC [Concomitant]
     Dates: start: 20010226
  4. SIMVASTATIN [Concomitant]
     Dates: start: 20010226
  5. AMLODIPINE [Concomitant]
     Dates: start: 20010226
  6. HUMULIN R [Concomitant]

REACTIONS (7)
  - ASTHENIA [None]
  - INFECTION [None]
  - LYMPHADENOPATHY MEDIASTINAL [None]
  - NIGHT SWEATS [None]
  - PYREXIA [None]
  - RHEUMATOID ARTHRITIS [None]
  - RHEUMATOID LUNG [None]
